FAERS Safety Report 9095401 (Version 2)
Quarter: 2013Q1

REPORT INFORMATION
  Report Type: Spontaneous
  Country: US (occurrence: None)
  Receive Date: 20130123
  Receipt Date: 20130208
  Transmission Date: 20140127
  Serious: Yes (Hospitalization, Other)
  Sender: FDA-Public Use
  Company Number: TPA2013A00876

PATIENT
  Age: 85 Year
  Sex: Female

DRUGS (3)
  1. ACTOS (PIOGLITAZONE HYDROCHLORIDE) [Suspect]
     Indication: DIABETES MELLITUS
     Dates: start: 2008
  2. GLIMEPIRIDE (GLIMEPIRIDE) [Concomitant]
  3. UNKNOWN MEDICATIONS (ALL OTHER THERAPEUTIC PRODUCTS) [Concomitant]

REACTIONS (15)
  - Knee arthroplasty [None]
  - Tibia fracture [None]
  - Fibula fracture [None]
  - Foot fracture [None]
  - Nerve injury [None]
  - Urinary tract infection [None]
  - Coronary artery bypass [None]
  - Tongue disorder [None]
  - Oral disorder [None]
  - Intervertebral disc disorder [None]
  - Salivary gland disorder [None]
  - Eye swelling [None]
  - Ear swelling [None]
  - Jaw disorder [None]
  - Swelling [None]
